FAERS Safety Report 9162019 (Version 5)
Quarter: 2013Q2

REPORT INFORMATION
  Report Type: Spontaneous
  Country: GB (occurrence: None)
  Receive Date: 20130220
  Receipt Date: 20130618
  Transmission Date: 20140414
  Serious: Yes (Other)
  Sender: FDA-Public Use
  Company Number: AUR-APL-2013-01442

PATIENT
  Age: 52 Year
  Sex: Female

DRUGS (7)
  1. MIRTAZAPINE [Suspect]
     Indication: PRODUCT USED FOR UNKNOWN INDICATION
     Dosage: UNKNOWN, STOPPED
  2. PEGINTERFERON ALFA-2B (PEGINTERFERON ALFA-2B) [Suspect]
     Indication: HEPATITIS C
     Dosage: (1 IN 1 WK), SUBCUTANEOUS
     Route: 058
     Dates: start: 20121001
  3. EMTRICITABINE [Concomitant]
  4. RILPIVIRINE HYDROCHLORIDE [Concomitant]
  5. EVIPLERA (TENOFOVIR DISOPROXIL FUMARATE) [Concomitant]
  6. RIBAVIRIN [Suspect]
     Indication: HEPATITIS C
     Dosage: 2 IN1D.
     Route: 048
     Dates: start: 20121001
  7. INCIVO (TELAPREVIR) [Suspect]
     Indication: HEPATITIS C
     Dosage: 750 MG 3 IN 1 DAY
     Route: 048
     Dates: start: 20121001

REACTIONS (12)
  - Fatigue [None]
  - Haemoglobin decreased [None]
  - Musculoskeletal pain [None]
  - Insomnia [None]
  - Skin discolouration [None]
  - Hallucination [None]
  - Confusional state [None]
  - Abnormal dreams [None]
  - Vomiting [None]
  - Depressed mood [None]
  - Disorientation [None]
  - Musculoskeletal pain [None]
